FAERS Safety Report 5304414-7 (Version None)
Quarter: 2007Q2

REPORT INFORMATION
  Report Type: 
  Country: None (occurrence: None)
  Receive Date: 20070423
  Receipt Date: 20070412
  Transmission Date: 20071010
  Serious: Yes (Hospitalization)
  Sender: FDA-Public Use
  Company Number: US-ROCHE-488826

PATIENT
  Age: 49 Year
  Sex: Male
  Weight: 77.1 kg

DRUGS (4)
  1. PEG-INTERFERON A-2A (RO 25-8310) [Suspect]
     Route: 065
     Dates: start: 20060609
  2. RIBAVIRIN [Suspect]
     Route: 048
     Dates: start: 20060609
  3. AMBIEN [Concomitant]
  4. VIAGRA [Concomitant]

REACTIONS (1)
  - BILIARY DYSKINESIA [None]
